FAERS Safety Report 22801258 (Version 8)
Quarter: 2024Q2

REPORT INFORMATION
  Report Type: Spontaneous
  Country: GB (occurrence: GB)
  Receive Date: 20230809
  Receipt Date: 20240603
  Transmission Date: 20240716
  Serious: Yes (Hospitalization, Other)
  Sender: FDA-Public Use
  Company Number: GB-002147023-NVSC2023GB152984

PATIENT
  Age: 48 Year
  Sex: Female

DRUGS (15)
  1. OXALIPLATIN [Suspect]
     Active Substance: OXALIPLATIN
     Indication: Colorectal cancer metastatic
     Dosage: 120 MILLIGRAM
     Route: 042
     Dates: start: 20230405
  2. OXALIPLATIN [Suspect]
     Active Substance: OXALIPLATIN
     Dosage: 120 MILLIGRAM
     Route: 042
  3. OXALIPLATIN [Suspect]
     Active Substance: OXALIPLATIN
     Dosage: 120 MILLIGRAM
     Route: 042
  4. ZOPICLONE [Suspect]
     Active Substance: ZOPICLONE
     Indication: Insomnia
     Dosage: UNK
     Route: 065
     Dates: start: 20230523
  5. BEVACIZUMAB [Suspect]
     Active Substance: BEVACIZUMAB
     Indication: Colorectal cancer metastatic
     Dosage: 250 MILLIGRAM
     Route: 042
     Dates: start: 20230405
  6. FLUOROURACIL [Suspect]
     Active Substance: FLUOROURACIL
     Indication: Colorectal cancer metastatic
     Dosage: 600 MILLIGRAM
     Route: 042
     Dates: start: 20230405
  7. FLUOROURACIL [Suspect]
     Active Substance: FLUOROURACIL
     Dosage: UNK
     Route: 065
  8. LEUCOVORIN [Suspect]
     Active Substance: LEUCOVORIN\LEUCOVORIN CALCIUM
     Indication: Colorectal cancer metastatic
     Dosage: 590 MILLIGRAM
     Route: 042
     Dates: start: 20230405
  9. LEUCOVORIN [Suspect]
     Active Substance: LEUCOVORIN\LEUCOVORIN CALCIUM
     Dosage: 690 MILLIGRAM
     Route: 042
     Dates: start: 20230405
  10. BENZYDAMINE [Concomitant]
     Active Substance: BENZYDAMINE
     Indication: Stomatitis
     Dosage: 0.15 PERCENT
     Route: 048
     Dates: start: 20230605
  11. BENZYDAMINE [Concomitant]
     Active Substance: BENZYDAMINE
     Indication: Stomatitis
     Dosage: UNK
     Route: 048
  12. MORPHINE SULFATE [Concomitant]
     Active Substance: MORPHINE SULFATE
     Indication: Abdominal pain lower
     Dosage: UNK
     Route: 065
     Dates: start: 20230502
  13. XARELTO [Concomitant]
     Active Substance: RIVAROXABAN
     Indication: Deep vein thrombosis
     Dosage: UNK
     Route: 065
     Dates: start: 20230608
  14. XARELTO [Concomitant]
     Active Substance: RIVAROXABAN
     Indication: Pulmonary embolism
  15. ZOPICLONE [Concomitant]
     Active Substance: ZOPICLONE
     Indication: Insomnia
     Dosage: UNK
     Route: 048
     Dates: start: 20230523

REACTIONS (4)
  - Colorectal cancer metastatic [Unknown]
  - Malignant neoplasm progression [Unknown]
  - Condition aggravated [Unknown]
  - Ascites [Recovering/Resolving]

NARRATIVE: CASE EVENT DATE: 20230630
